FAERS Safety Report 10360513 (Version 1)
Quarter: 2014Q3

REPORT INFORMATION
  Report Type: Spontaneous
  Country: US (occurrence: None)
  Receive Date: 20140801
  Receipt Date: 20140801
  Transmission Date: 20150326
  Serious: Yes (Hospitalization)
  Sender: FDA-Public Use
  Company Number: None

PATIENT
  Age: 49 Year
  Sex: Male

DRUGS (1)
  1. GLEEVEC [Suspect]
     Active Substance: IMATINIB MESYLATE
     Indication: CHRONIC MYELOID LEUKAEMIA
     Route: 048
     Dates: start: 20140715, end: 20140726

REACTIONS (4)
  - Blood bilirubin increased [None]
  - Rash generalised [None]
  - Fatigue [None]
  - Body temperature increased [None]

NARRATIVE: CASE EVENT DATE: 20140725
